FAERS Safety Report 5556345-5 (Version None)
Quarter: 2007Q4

REPORT INFORMATION
  Report Type: 
  Country: None (occurrence: None)
  Receive Date: 20071213
  Receipt Date: 20071001
  Transmission Date: 20080405
  Serious: No
  Sender: FDA-Public Use
  Company Number: US-AMGEN-KDL238982

PATIENT
  Sex: Female
  Weight: 78.5 kg

DRUGS (5)
  1. ENBREL [Suspect]
     Indication: RHEUMATOID ARTHRITIS
     Route: 058
     Dates: start: 20070723, end: 20070906
  2. ATACAND [Concomitant]
  3. FEXOFENADINE [Concomitant]
  4. PREDNISONE [Concomitant]
  5. PREMARIN [Concomitant]

REACTIONS (9)
  - DYSPNOEA [None]
  - HEART RATE DECREASED [None]
  - INJECTION SITE BRUISING [None]
  - INJECTION SITE ERYTHEMA [None]
  - INJECTION SITE IRRITATION [None]
  - INJECTION SITE PAIN [None]
  - INJECTION SITE SWELLING [None]
  - PLEURISY [None]
  - SEROSITIS [None]
